FAERS Safety Report 4314215-4 (Version None)
Quarter: 2004Q1

REPORT INFORMATION
  Report Type: 
  Country: None (occurrence: None)
  Receive Date: 20040304
  Receipt Date: 20030606
  Transmission Date: 20041129
  Serious: No
  Sender: FDA-Public Use
  Company Number: 201153

PATIENT
  Age: 12 Year
  Sex: Male
  Weight: 86.2 kg

DRUGS (4)
  1. NUTROPIN AQ [Suspect]
     Indication: HYPOPITUITARISM
     Dosage: 4.2 MG, QD, SUBCUTANEOUS
     Route: 058
     Dates: start: 20021204
  2. CORTEF [Concomitant]
  3. SYNTHROID [Concomitant]
  4. DESMOPRESSIN ACETATE (DESMOPRESSIN ACETATE) [Concomitant]

REACTIONS (1)
  - SLIPPED FEMORAL EPIPHYSIS [None]
